FAERS Safety Report 19661574 (Version 2)
Quarter: 2021Q3

REPORT INFORMATION
  Report Type: Spontaneous
  Country: JP (occurrence: JP)
  Receive Date: 20210805
  Receipt Date: 20210831
  Transmission Date: 20211014
  Serious: Yes (Other)
  Sender: FDA-Public Use
  Company Number: JP-PFIZER INC-202100987267

PATIENT
  Age: 69 Year
  Sex: Female

DRUGS (5)
  1. MEKTOVI [Suspect]
     Active Substance: BINIMETINIB
     Indication: COLON CANCER
     Dosage: UNK
     Route: 048
     Dates: start: 20210614, end: 20210618
  2. CETUXIMAB RECOMBINANT [Concomitant]
     Active Substance: CETUXIMAB
     Dosage: UNK MG
     Route: 065
     Dates: start: 20210726
  3. BRAFTOVI [Suspect]
     Active Substance: ENCORAFENIB
     Indication: COLON CANCER
     Dosage: 300 MG
     Route: 048
     Dates: start: 20210614, end: 20210618
  4. BRAFTOVI [Suspect]
     Active Substance: ENCORAFENIB
     Dosage: 225 MG
     Route: 048
     Dates: start: 20210726
  5. CETUXIMAB RECOMBINANT [Concomitant]
     Active Substance: CETUXIMAB
     Indication: COLON CANCER
     Dosage: UNK
     Route: 065
     Dates: start: 20210614, end: 20210618

REACTIONS (2)
  - Vision blurred [Recovered/Resolved]
  - Serous retinal detachment [Recovered/Resolved]

NARRATIVE: CASE EVENT DATE: 20210614
